FAERS Safety Report 23500158 (Version 1)
Quarter: 2024Q1

REPORT INFORMATION
  Report Type: Spontaneous
  Country: US (occurrence: None)
  Receive Date: 20240208
  Receipt Date: 20240208
  Transmission Date: 20240410
  Serious: No
  Sender: FDA-Public Use
  Company Number: None

PATIENT
  Age: 40 Year
  Sex: Female

DRUGS (1)
  1. VTAMA [Suspect]
     Active Substance: TAPINAROF
     Indication: Guttate psoriasis
     Dosage: FREQUENCY : AS DIRECTED;?
     Dates: start: 202306

REACTIONS (3)
  - Breast cancer [None]
  - Therapy interrupted [None]
  - Psoriasis [None]
